FAERS Safety Report 19085907 (Version 10)
Quarter: 2021Q4

REPORT INFORMATION
  Report Type: Other
  Country: PA (occurrence: PA)
  Receive Date: 20210402
  Receipt Date: 20211222
  Transmission Date: 20220303
  Serious: Yes (Other)
  Sender: FDA-Public Use
  Company Number: PA-002147023-NVSC2021PA056693

PATIENT
  Age: 58 Year
  Sex: Female

DRUGS (5)
  1. XOLAIR [Suspect]
     Active Substance: OMALIZUMAB
     Indication: Chronic spontaneous urticaria
     Dosage: 150 MG, BIW, BENEATH THE SKIN, USUALLY VIA INJECTION
     Route: 058
     Dates: start: 20210305, end: 20210320
  2. XOLAIR [Suspect]
     Active Substance: OMALIZUMAB
     Route: 058
  3. XOLAIR [Suspect]
     Active Substance: OMALIZUMAB
     Route: 058
     Dates: start: 20210320
  4. XOLAIR [Suspect]
     Active Substance: OMALIZUMAB
     Route: 058
  5. CEPHALEXIN [Concomitant]
     Active Substance: CEPHALEXIN
     Indication: Product used for unknown indication
     Route: 065

REACTIONS (20)
  - Cellulitis [Recovering/Resolving]
  - Pain in extremity [Unknown]
  - Throat irritation [Recovered/Resolved]
  - Inflammation [Unknown]
  - Limb injury [Unknown]
  - Anxiety [Unknown]
  - Lip oedema [Not Recovered/Not Resolved]
  - Insomnia [Unknown]
  - Puncture site pain [Recovering/Resolving]
  - Pruritus [Unknown]
  - Headache [Recovering/Resolving]
  - Hypersensitivity [Unknown]
  - Urticaria [Unknown]
  - Feeling abnormal [Unknown]
  - Malaise [Unknown]
  - Blood pressure decreased [Unknown]
  - Gastrooesophageal reflux disease [Unknown]
  - Drug ineffective [Unknown]
  - Inappropriate schedule of product administration [Unknown]
  - Off label use [Unknown]

NARRATIVE: CASE EVENT DATE: 20210305
